FAERS Safety Report 4352533-4 (Version None)
Quarter: 2004Q2

REPORT INFORMATION
  Report Type: 
  Country: None (occurrence: None)
  Receive Date: 20040503
  Receipt Date: 20040503
  Transmission Date: 20050107
  Serious: Yes (Other)
  Sender: FDA-Public Use
  Company Number: None

PATIENT
  Age: 55 Year
  Sex: Male
  Weight: 126.1 kg

DRUGS (9)
  1. MS CONTIN [Suspect]
     Dosage: 30MG PO BID
     Route: 048
     Dates: start: 20040310
  2. GABAPENTIN [Concomitant]
  3. ATORVASTATIN CALCIUM [Concomitant]
  4. PLAVIX [Concomitant]
  5. EZETIMIBE [Concomitant]
  6. SOTALOL HCL [Concomitant]
  7. BUMEX [Concomitant]
  8. DIGOXIN [Concomitant]
  9. LISINOPRIL [Concomitant]

REACTIONS (5)
  - ANAPHYLACTIC REACTION [None]
  - CARDIAC FAILURE CONGESTIVE [None]
  - DELIRIUM [None]
  - HALLUCINATION [None]
  - LETHARGY [None]
